FAERS Safety Report 9233016 (Version 1)
Quarter: 2013Q2

REPORT INFORMATION
  Report Type: Spontaneous
  Country: US (occurrence: None)
  Receive Date: 20130412
  Receipt Date: 20130412
  Transmission Date: 20140414
  Serious: Yes (Death, Hospitalization)
  Sender: FDA-Public Use
  Company Number: AXC-2013-000141

PATIENT
  Age: 47 Year
  Sex: Male

DRUGS (1)
  1. SOURCECF [Suspect]
     Indication: CYSTIC FIBROSIS
     Route: 048
     Dates: end: 20130225

REACTIONS (3)
  - Cystic fibrosis [None]
  - Pulmonary embolism [None]
  - Condition aggravated [None]
